FAERS Safety Report 8437748 (Version 2)
Quarter: 2013Q1

REPORT INFORMATION
  Report Type: Spontaneous
  Country: US (occurrence: None)
  Receive Date: 20120221
  Receipt Date: 20130123
  Transmission Date: 20140127
  Serious: Yes (Hospitalization)
  Sender: FDA-Public Use
  Company Number: DKLU1076692

PATIENT
  Age: 11 Month
  Sex: Male

DRUGS (1)
  1. SABRIL [Suspect]
     Indication: MUSCLE SPASMS
     Dosage: 600 MG, 2 IN 1 D, ORAL
     Route: 048
     Dates: start: 201201

REACTIONS (1)
  - Weight decreased [None]
